FAERS Safety Report 11522557 (Version 1)
Quarter: 2015Q3

REPORT INFORMATION
  Report Type: Spontaneous
  Country: US (occurrence: US)
  Receive Date: 20150903
  Receipt Date: 20150903
  Transmission Date: 20151125
  Serious: Yes (Hospitalization)
  Sender: FDA-Public Use
  Company Number: US-ELI_LILLY_AND_COMPANY-US201301006198

PATIENT
  Sex: Female

DRUGS (3)
  1. LYRICA [Concomitant]
     Active Substance: PREGABALIN
     Dosage: 100 MG, UNKNOWN
  2. LYRICA [Concomitant]
     Active Substance: PREGABALIN
     Indication: FIBROMYALGIA
     Dosage: 50 MG, UNKNOWN
  3. CYMBALTA [Suspect]
     Active Substance: DULOXETINE HYDROCHLORIDE

REACTIONS (12)
  - Drug withdrawal syndrome [Unknown]
  - Drug ineffective [Unknown]
  - Contusion [Unknown]
  - Swelling [Unknown]
  - Neck pain [Unknown]
  - Breast pain [Unknown]
  - Pain in extremity [Unknown]
  - Vasodilatation [Unknown]
  - Paraesthesia [Unknown]
  - Muscle spasms [Unknown]
  - Dry mouth [Unknown]
  - Somnolence [Unknown]
